FAERS Safety Report 12577459 (Version 2)
Quarter: 2016Q3

REPORT INFORMATION
  Report Type: Spontaneous
  Country: CN (occurrence: CN)
  Receive Date: 20160720
  Receipt Date: 20160728
  Transmission Date: 20161109
  Serious: Yes (Other)
  Sender: FDA-Public Use
  Company Number: CN-ABBVIE-16P-035-1681119-00

PATIENT
  Age: 17 Year
  Sex: Female

DRUGS (2)
  1. PHENOBARBITAL SODIUM. [Suspect]
     Active Substance: PHENOBARBITAL SODIUM
     Indication: EPILEPSY
     Route: 042
     Dates: start: 20151203, end: 20151209
  2. DEPAKINE CHRONO [Suspect]
     Active Substance: VALPROATE SODIUM
     Indication: EPILEPSY
     Route: 048
     Dates: end: 20151221

REACTIONS (3)
  - Cough [Recovering/Resolving]
  - Pyrexia [Recovering/Resolving]
  - Nasal obstruction [Recovering/Resolving]

NARRATIVE: CASE EVENT DATE: 20151208
